FAERS Safety Report 4985635-X (Version None)
Quarter: 2006Q2

REPORT INFORMATION
  Report Type: 
  Country: None (occurrence: None)
  Receive Date: 20060428
  Receipt Date: 20060407
  Transmission Date: 20061013
  Serious: Yes (Hospitalization)
  Sender: FDA-Public Use
  Company Number: PHBS2006JP05523

PATIENT
  Age: 57 Year
  Sex: Female
  Weight: 25 kg

DRUGS (6)
  1. DICLOFENAC SODIUM [Suspect]
     Indication: RHEUMATOID ARTHRITIS
     Dosage: 37.5 MG/DAY
     Route: 048
     Dates: start: 20010101
  2. DICLOFENAC SODIUM [Suspect]
     Dosage: 25 MG, PRN
     Route: 054
     Dates: start: 20010101, end: 20030101
  3. DICLOFENAC SODIUM [Suspect]
     Dosage: 25 MG, Q48H
     Route: 054
     Dates: start: 20030101
  4. PREDNISOLONE [Concomitant]
     Indication: RHEUMATOID ARTHRITIS
     Dosage: 5 MG/DAY
     Route: 048
     Dates: start: 19990101
  5. BUCILLAMINE [Concomitant]
     Indication: RHEUMATOID ARTHRITIS
     Route: 048
     Dates: start: 19990101
  6. SULINDAC [Concomitant]
     Indication: ANALGESIC EFFECT
     Dosage: 200 MG/DAY
     Route: 048

REACTIONS (21)
  - ABDOMINAL DISTENSION [None]
  - ABDOMINAL PAIN LOWER [None]
  - ABDOMINAL TENDERNESS [None]
  - BOWEL SOUNDS ABNORMAL [None]
  - BREATH SOUNDS ABNORMAL [None]
  - FIBROSIS [None]
  - HYPOPROTEINAEMIA [None]
  - ILEAL STENOSIS [None]
  - ILEUS [None]
  - INTESTINAL DIAPHRAGM DISEASE [None]
  - INTESTINAL DILATATION [None]
  - INTESTINAL OBSTRUCTION [None]
  - INTESTINAL RESECTION [None]
  - IRON DEFICIENCY ANAEMIA [None]
  - MUCOSAL EROSION [None]
  - MUCOSAL ULCERATION [None]
  - OEDEMA PERIPHERAL [None]
  - SCAR [None]
  - SMALL INTESTINAL STENOSIS [None]
  - VOMITING [None]
  - WHITE BLOOD CELL COUNT INCREASED [None]
